FAERS Safety Report 15815284 (Version 1)
Quarter: 2019Q1

REPORT INFORMATION
  Report Type: Spontaneous
  Country: GB (occurrence: GB)
  Receive Date: 20190112
  Receipt Date: 20190112
  Transmission Date: 20190417
  Serious: Yes (Hospitalization)
  Sender: FDA-Public Use
  Company Number: GB-TEVA-2019-GB-997927

PATIENT
  Age: 96 Year
  Sex: Female

DRUGS (3)
  1. PREDNISOLONE. [Suspect]
     Active Substance: PREDNISOLONE
     Indication: RHEUMATOID ARTHRITIS
     Dosage: 7.5 MILLIGRAM DAILY; 7.5MG PER DAY REDUCED AFTER ONE WEEK TO 5MG PER DAY
     Route: 048
     Dates: start: 20181201, end: 20181208
  2. OMEPRAZOLE. [Concomitant]
     Active Substance: OMEPRAZOLE
  3. PREDNISOLONE. [Suspect]
     Active Substance: PREDNISOLONE
     Route: 048
     Dates: start: 20181209

REACTIONS (1)
  - Atrial fibrillation [Recovered/Resolved]
